FAERS Safety Report 5766979-0 (Version None)
Quarter: 2008Q2

REPORT INFORMATION
  Report Type: 
  Country: None (occurrence: None)
  Receive Date: 20080612
  Receipt Date: 20080605
  Transmission Date: 20081010
  Serious: Yes (Hospitalization)
  Sender: FDA-Public Use
  Company Number: DK-WATSON-2008-03463

PATIENT
  Age: 82 Year
  Sex: Female
  Weight: 90 kg

DRUGS (6)
  1. HYDROCODONE BITARTRATE/ACETAMINOPHEN UNKNOWN STRENGTH (WATSON) [Suspect]
     Indication: DRUG USE FOR UNKNOWN INDICATION
     Dosage: 1 TABLET Q6 HRS
     Route: 048
  2. ALDOMET                            /00000101/ [Concomitant]
     Indication: DRUG USE FOR UNKNOWN INDICATION
     Dosage: 325 MG, DAILY
  3. ALEVE [Concomitant]
     Indication: DRUG USE FOR UNKNOWN INDICATION
     Dosage: AS NEEDED
  4. HYDRALAZINE HCL [Concomitant]
     Indication: DRUG USE FOR UNKNOWN INDICATION
     Dosage: 25 MG, DAILY
  5. TARKA [Concomitant]
     Indication: DRUG USE FOR UNKNOWN INDICATION
     Dosage: 4/ 240 MG, DAILY
  6. COREG [Concomitant]
     Indication: DRUG USE FOR UNKNOWN INDICATION
     Dosage: 20 MG, TID

REACTIONS (1)
  - GASTROENTERITIS [None]
